FAERS Safety Report 8397057-2 (Version None)
Quarter: 2012Q2

REPORT INFORMATION
  Report Type: 
  Country: None (occurrence: None)
  Receive Date: 20120530
  Receipt Date: 20120525
  Transmission Date: 20120825
  Serious: Yes (Death, Hospitalization, Other)
  Sender: FDA-Public Use
  Company Number: NL-AMGEN-NLDSP2012010213

PATIENT
  Age: 54 Year

DRUGS (29)
  1. OXYCODONE HCL [Concomitant]
     Dosage: 5 MG, PRN
     Dates: start: 20051111
  2. ARANESP [Suspect]
     Indication: PRODUCT USED FOR UNKNOWN INDICATION
     Dosage: 500 MUG, Q3WK
     Dates: start: 20051203, end: 20060106
  3. ONDANSETRON [Concomitant]
     Dosage: 16 MG, UNK
     Dates: start: 20051103
  4. MAGNESIUM HYDROXIDE TAB [Concomitant]
     Dosage: UNK
  5. DIPYRIDAMOL [Concomitant]
     Dosage: 300 MG, UNK
  6. MAALOX                             /00082501/ [Concomitant]
  7. TEMAZEPAM [Concomitant]
     Dosage: 10 MG, UNK
     Dates: start: 20051104
  8. PANTOPRAZOLE [Concomitant]
     Dosage: 40 MG, UNK
  9. FOLIC ACID [Concomitant]
     Dosage: UNK
     Dates: start: 20051024
  10. FENTANYL [Concomitant]
     Dosage: 4 MG, UNK
     Dates: start: 20051122
  11. ACETAMINOPHEN [Concomitant]
     Dosage: 400 MG, UNK
     Dates: start: 20040101
  12. LEVOMEPROMAZINE [Concomitant]
     Dosage: 50 MG, UNK
     Dates: start: 20060109, end: 20060113
  13. VITAMIN TAB [Concomitant]
     Dosage: UNK
  14. SCOPODERM                          /00008701/ [Concomitant]
     Dosage: 1.5 MG, UNK
     Dates: start: 20051211
  15. MIRTAZAPINE [Concomitant]
     Dosage: 15 MG, UNK
     Dates: start: 20051114
  16. ATORVASTATIN CALCIUM [Concomitant]
     Dosage: 10 MG, UNK
  17. RAMIPRIL [Concomitant]
     Dosage: 2.5 MG, UNK
  18. APREPITANT [Concomitant]
     Dosage: 125 MG, UNK
     Dates: start: 20060105, end: 20060105
  19. GRANISETRON [Concomitant]
     Dosage: 2 MG, UNK
     Dates: start: 20051122
  20. PREDNISONE TAB [Concomitant]
     Dosage: 15 MG, UNK
     Dates: start: 20051104
  21. CISPLATIN [Concomitant]
     Dosage: 2300 MG, UNK
     Dates: start: 20051101, end: 20060105
  22. GEMZAR [Concomitant]
     Dosage: 150 MG, UNK
     Dates: start: 20051101, end: 20060105
  23. METOCLOPRAMIDE [Concomitant]
     Dosage: 30 MG, UNK
     Dates: start: 20040101
  24. PAROXETINE [Concomitant]
     Dosage: 20 MG, UNK
     Dates: start: 20040101
  25. RANITIDINE [Concomitant]
     Dosage: 300 MG, UNK
     Dates: start: 20040101
  26. CARBASALATE [Concomitant]
     Dosage: 30 MG, UNK
     Dates: start: 20050905
  27. POLYETHYLENE GLYCOL [Concomitant]
     Dosage: UNK
     Dates: start: 20051020
  28. VITAMIN B12                        /00056201/ [Concomitant]
     Dosage: UNK
     Dates: start: 20051024, end: 20060104
  29. MORPHINE [Concomitant]
     Dosage: 50 MG, UNK
     Dates: start: 20040101

REACTIONS (7)
  - DYSPHAGIA [None]
  - NAUSEA [None]
  - DEHYDRATION [None]
  - DECREASED APPETITE [None]
  - TOXICITY TO VARIOUS AGENTS [None]
  - NEOPLASM MALIGNANT [None]
  - OESOPHAGITIS [None]
